FAERS Safety Report 9407328 (Version 3)
Quarter: 2013Q3

REPORT INFORMATION
  Report Type: Spontaneous
  Country: IT (occurrence: IT)
  Receive Date: 20130718
  Receipt Date: 20130916
  Transmission Date: 20140515
  Serious: Yes (Hospitalization)
  Sender: FDA-Public Use
  Company Number: IT-NOVOPROD-382944

PATIENT
  Age: 78 Year
  Sex: Female

DRUGS (6)
  1. NOVONORM [Suspect]
     Indication: DIABETES MELLITUS
     Dosage: 4 MG, QD (2 TABLETS DAILY)
     Route: 065
     Dates: start: 20130101
  2. INDERAL [Concomitant]
     Dosage: 1 TAB, QD (40 MG)
     Route: 065
  3. PARIET [Concomitant]
     Dosage: UNKNOWN
     Route: 065
  4. ALDACTONE                          /00006201/ [Concomitant]
     Dosage: 50 MG, UNK (25 MG)
     Route: 065
  5. LASIX                              /00032601/ [Concomitant]
     Dosage: 12.5 MG, UNK (25 MG)
     Route: 065
  6. PORTOLAC [Concomitant]
     Dosage: 60 MG, UNK (200 MG)
     Route: 065

REACTIONS (2)
  - Head injury [Recovered/Resolved]
  - Hypoglycaemia [Recovered/Resolved]
